FAERS Safety Report 4683851-8 (Version None)
Quarter: 2005Q2

REPORT INFORMATION
  Report Type: 
  Country: None (occurrence: None)
  Receive Date: 20050602
  Receipt Date: 20050406
  Transmission Date: 20051028
  Serious: Yes (Hospitalization)
  Sender: FDA-Public Use
  Company Number: USA050495263

PATIENT
  Age: 35 Year
  Sex: Female

DRUGS (1)
  1. CYMBALTA [Suspect]

REACTIONS (1)
  - SUICIDE ATTEMPT [None]
